FAERS Safety Report 17413073 (Version 2)
Quarter: 2020Q1

REPORT INFORMATION
  Report Type: Spontaneous
  Country: FR (occurrence: FR)
  Receive Date: 20200213
  Receipt Date: 20200219
  Transmission Date: 20200409
  Serious: Yes (Hospitalization, Congenital Anomaly, Other)
  Sender: FDA-Public Use
  Company Number: FR-TEVA-2020-FR-1183061

PATIENT
  Age: 35 Year
  Sex: Female
  Weight: 105 kg

DRUGS (2)
  1. OFLOXACIN. [Suspect]
     Active Substance: OFLOXACIN
     Indication: CYSTITIS
     Route: 048
     Dates: start: 201710, end: 201710
  2. RIAMET [Suspect]
     Active Substance: ARTEMETHER\LUMEFANTRINE
     Indication: PLASMODIUM FALCIPARUM INFECTION
     Route: 048
     Dates: start: 201710, end: 201710

REACTIONS (3)
  - Haemolytic anaemia [Recovered/Resolved]
  - Toxicity to various agents [Recovered/Resolved]
  - Glucose-6-phosphate dehydrogenase deficiency [Recovered/Resolved]

NARRATIVE: CASE EVENT DATE: 201711
